FAERS Safety Report 6597204-9 (Version None)
Quarter: 2010Q1

REPORT INFORMATION
  Report Type: 
  Country: None (occurrence: None)
  Receive Date: 20100212
  Receipt Date: 20100129
  Transmission Date: 20100710
  Serious: No
  Sender: FDA-Public Use
  Company Number: 2010000573

PATIENT
  Age: 59 Year
  Sex: Male

DRUGS (1)
  1. FENTORA [Suspect]
     Indication: PAIN
     Dosage: 2400 MCG (800 MCG, 3 IN1  D), BU
     Route: 002
     Dates: start: 20090301

REACTIONS (1)
  - DRUG PRESCRIBING ERROR [None]
